FAERS Safety Report 25144833 (Version 1)
Quarter: 2025Q2

REPORT INFORMATION
  Report Type: Spontaneous
  Country: US (occurrence: US)
  Receive Date: 20250401
  Receipt Date: 20250401
  Transmission Date: 20250717
  Serious: No
  Sender: DR REDDYS
  Company Number: US-DRL-USA-USA/2025/03/004245

PATIENT
  Age: 84 Year
  Sex: Female
  Weight: 120 kg

DRUGS (1)
  1. CARBIDOPA\LEVODOPA [Suspect]
     Active Substance: CARBIDOPA\LEVODOPA
     Indication: Parkinson^s disease
     Dosage: YELLOW ROUND SHAPE TABLET IMPRINTED WITH M7 21 ON THE FRONT, 4 PILLS A DAY
     Route: 048
     Dates: start: 20220930

REACTIONS (1)
  - Somnolence [Not Recovered/Not Resolved]

NARRATIVE: CASE EVENT DATE: 20220930
